FAERS Safety Report 7305665-2 (Version None)
Quarter: 2011Q1

REPORT INFORMATION
  Report Type: 
  Country: None (occurrence: None)
  Receive Date: 20110222
  Receipt Date: 20110214
  Transmission Date: 20110831
  Serious: Yes (Hospitalization, Congenital Anomaly)
  Sender: FDA-Public Use
  Company Number: A0877367A

PATIENT
  Sex: Male

DRUGS (1)
  1. PAXIL [Suspect]
     Indication: DEPRESSION
     Dosage: 20MG IN THE MORNING
     Route: 064
     Dates: start: 19970221

REACTIONS (6)
  - PLEURAL EFFUSION [None]
  - VENTRICULAR SEPTAL DEFECT [None]
  - DEVELOPMENTAL DELAY [None]
  - CARDIAC SEPTAL DEFECT [None]
  - ATRIAL SEPTAL DEFECT [None]
  - DRUG EXPOSURE DURING PREGNANCY [None]
